FAERS Safety Report 24567193 (Version 3)
Quarter: 2025Q2

REPORT INFORMATION
  Report Type: Spontaneous
  Country: JP (occurrence: JP)
  Receive Date: 20241030
  Receipt Date: 20250605
  Transmission Date: 20250717
  Serious: Yes (Other)
  Sender: ALEXION PHARMACEUTICALS
  Company Number: JP-ASTRAZENECA-240063190_012620_P_1

PATIENT
  Age: 59 Year
  Weight: 54 kg

DRUGS (32)
  1. TRUQAP [Suspect]
     Active Substance: CAPIVASERTIB
     Dosage: 4-DAYS-ON, 3-DAYS-OFF SCHEDULE
  2. FASLODEX [Suspect]
     Active Substance: FULVESTRANT
  3. FASLODEX [Suspect]
     Active Substance: FULVESTRANT
  4. FASLODEX [Suspect]
     Active Substance: FULVESTRANT
  5. ZOMETA [Concomitant]
     Active Substance: ZOLEDRONIC ACID
     Indication: Breast cancer recurrent
     Route: 065
  6. ZOMETA [Concomitant]
     Active Substance: ZOLEDRONIC ACID
     Route: 065
  7. ANASTROZOLE [Concomitant]
     Active Substance: ANASTROZOLE
     Indication: Breast cancer recurrent
     Route: 065
  8. EXEMESTANE [Concomitant]
     Active Substance: EXEMESTANE
     Indication: Breast cancer recurrent
     Route: 065
  9. EXEMESTANE [Concomitant]
     Active Substance: EXEMESTANE
     Route: 065
  10. MEDROXYPROGESTERONE [Concomitant]
     Active Substance: MEDROXYPROGESTERONE
     Indication: Breast cancer recurrent
     Route: 065
  11. DOXIFLURIDINE [Concomitant]
     Active Substance: DOXIFLURIDINE
     Indication: Breast cancer recurrent
     Route: 065
  12. DOCETAXEL [Concomitant]
     Active Substance: DOCETAXEL
     Indication: Breast cancer recurrent
     Route: 065
  13. TAMOXIFEN [Concomitant]
     Active Substance: TAMOXIFEN
     Indication: Breast cancer recurrent
     Route: 065
  14. ERIBULIN [Concomitant]
     Active Substance: ERIBULIN
     Indication: Breast cancer recurrent
     Route: 065
  15. PACLITAXEL [Concomitant]
     Active Substance: PACLITAXEL
     Indication: Breast cancer recurrent
     Route: 065
  16. PACLITAXEL [Concomitant]
     Active Substance: PACLITAXEL
     Route: 065
  17. PACLITAXEL [Concomitant]
     Active Substance: PACLITAXEL
     Route: 065
  18. VINORELBINE TARTRATE [Concomitant]
     Active Substance: VINORELBINE TARTRATE
     Indication: Breast cancer recurrent
     Route: 065
  19. LETROZOLE [Concomitant]
     Active Substance: LETROZOLE
     Indication: Breast cancer recurrent
     Route: 065
  20. ABEMACICLIB [Concomitant]
     Active Substance: ABEMACICLIB
     Indication: Breast cancer recurrent
     Route: 065
  21. ABEMACICLIB [Concomitant]
     Active Substance: ABEMACICLIB
     Route: 065
  22. BEVACIZUMAB [Concomitant]
     Active Substance: BEVACIZUMAB
  23. GEMCITABINE [Concomitant]
     Active Substance: GEMCITABINE
     Indication: Breast cancer recurrent
     Route: 065
  24. CARBOPLATIN [Concomitant]
     Active Substance: CARBOPLATIN
     Indication: Breast cancer recurrent
     Route: 065
  25. DESFLURANE [Concomitant]
     Active Substance: DESFLURANE
     Indication: Anaesthesia procedure
     Route: 065
  26. REMIFENTANIL [Concomitant]
     Active Substance: REMIFENTANIL
     Indication: Anaesthesia procedure
     Route: 065
  27. PROPOFOL [Concomitant]
     Active Substance: PROPOFOL
     Indication: Anaesthesia procedure
     Route: 065
  28. ROCURONIUM BROMIDE [Concomitant]
     Active Substance: ROCURONIUM BROMIDE
     Indication: Anaesthesia procedure
     Route: 065
  29. IBUPROFEN [Concomitant]
     Active Substance: IBUPROFEN
     Indication: Breast cancer recurrent
     Route: 065
  30. EPIRUBICIN HYDROCHLORIDE [Concomitant]
     Active Substance: EPIRUBICIN HYDROCHLORIDE
     Indication: Breast cancer recurrent
     Route: 065
  31. CYCLOPHOSPHAMIDE [Concomitant]
     Active Substance: CYCLOPHOSPHAMIDE
     Indication: Breast cancer recurrent
     Route: 065
  32. AVASTIN [Concomitant]
     Active Substance: BEVACIZUMAB
     Indication: Breast cancer recurrent
     Route: 065

REACTIONS (16)
  - Atypical fracture [Unknown]
  - Nausea [Recovered/Resolved]
  - Diarrhoea [Recovered/Resolved]
  - Pyrexia [Recovered/Resolved]
  - Taste disorder [Recovered/Resolved]
  - Stomatitis [Recovered/Resolved]
  - Glycosylated haemoglobin increased [Recovered/Resolved]
  - Nausea [Recovered/Resolved]
  - Vomiting [Recovered/Resolved]
  - Decreased appetite [Recovered/Resolved]
  - Hypoaesthesia [Recovered/Resolved]
  - Abdominal pain upper [Recovered/Resolved]
  - Pain in jaw [Unknown]
  - Oropharyngeal pain [Unknown]
  - Malaise [Recovered/Resolved]
  - Abdominal pain [Recovered/Resolved]
